FAERS Safety Report 11628143 (Version 5)
Quarter: 2015Q4

REPORT INFORMATION
  Report Type: Spontaneous
  Country: GB (occurrence: GB)
  Receive Date: 20151014
  Receipt Date: 20151204
  Transmission Date: 20160304
  Serious: Yes (Life-Threatening, Hospitalization)
  Sender: FDA-Public Use
  Company Number: GB-WATSON-2015-21560

PATIENT
  Age: 30 Year
  Sex: Female
  Weight: 90 kg

DRUGS (5)
  1. OMEPRAZOLE. [Concomitant]
     Active Substance: OMEPRAZOLE
     Indication: PRODUCT USED FOR UNKNOWN INDICATION
     Dosage: UNK
     Route: 065
  2. FENTANYL (UNKNOWN) [Suspect]
     Active Substance: FENTANYL
     Indication: INDUCTION OF ANAESTHESIA
     Dosage: 100 ?G, UNK
     Route: 042
     Dates: start: 20150924, end: 20150924
  3. ONDANSETRON (UNKNOWN) [Suspect]
     Active Substance: ONDANSETRON
     Indication: INDUCTION OF ANAESTHESIA
     Dosage: 3.3 MG, UNK
     Route: 042
     Dates: start: 20150924, end: 20150924
  4. ATRACURIUM (UNKNOWN) [Suspect]
     Active Substance: ATRACURIUM
     Indication: INDUCTION OF ANAESTHESIA
     Dosage: 30 MG, UNK
     Route: 042
     Dates: start: 20150924, end: 20150924
  5. METFORMIN [Concomitant]
     Active Substance: METFORMIN HYDROCHLORIDE
     Indication: PRODUCT USED FOR UNKNOWN INDICATION
     Dosage: UNK
     Route: 065

REACTIONS (1)
  - Anaphylactic reaction [Recovering/Resolving]

NARRATIVE: CASE EVENT DATE: 20150924
